FAERS Safety Report 23564858 (Version 1)
Quarter: 2024Q1

REPORT INFORMATION
  Report Type: Spontaneous
  Country: NP (occurrence: NP)
  Receive Date: 20240226
  Receipt Date: 20240226
  Transmission Date: 20240409
  Serious: Yes (Other)
  Sender: FDA-Public Use
  Company Number: NP-002147023-NVSC2024NP033645

PATIENT
  Sex: Male

DRUGS (4)
  1. OCTREOTIDE [Suspect]
     Active Substance: OCTREOTIDE\OCTREOTIDE ACETATE
     Indication: Congenital chylothorax
     Dosage: 7 ?G/KG/HR
     Route: 042
  2. OCTREOTIDE [Suspect]
     Active Substance: OCTREOTIDE\OCTREOTIDE ACETATE
  3. OCTREOTIDE [Suspect]
     Active Substance: OCTREOTIDE\OCTREOTIDE ACETATE
  4. SILDENAFIL [Suspect]
     Active Substance: SILDENAFIL
     Indication: Congenital chylothorax
     Dosage: 1 MG/KG, QD, IN THREE DIVIDED DOSES
     Route: 042

REACTIONS (3)
  - Pleural effusion [Recovering/Resolving]
  - Atelectasis neonatal [Recovering/Resolving]
  - Product use issue [Unknown]
